FAERS Safety Report 19758799 (Version 1)
Quarter: 2021Q3

REPORT INFORMATION
  Report Type: Spontaneous
  Country: US (occurrence: US)
  Receive Date: 20210827
  Receipt Date: 20210827
  Transmission Date: 20211014
  Serious: No
  Sender: FDA-Public Use
  Company Number: US-BIOGEN-2021BI01040674

PATIENT
  Sex: Female

DRUGS (2)
  1. EVRYSDI [Suspect]
     Active Substance: RISDIPLAM
     Indication: PRODUCT USED FOR UNKNOWN INDICATION
     Route: 065
  2. SPINRAZA [Suspect]
     Active Substance: NUSINERSEN
     Indication: SPINAL MUSCULAR ATROPHY
     Route: 065

REACTIONS (3)
  - Blood glucose increased [Unknown]
  - Urinary tract infection [Unknown]
  - Arthralgia [Recovered/Resolved]
